FAERS Safety Report 11276088 (Version 2)
Quarter: 2015Q4

REPORT INFORMATION
  Report Type: Spontaneous
  Country: US (occurrence: US)
  Receive Date: 20150716
  Receipt Date: 20151207
  Transmission Date: 20160304
  Serious: Yes (Hospitalization, Other)
  Sender: FDA-Public Use
  Company Number: US-MYLANLABS-2015M1023058

PATIENT

DRUGS (3)
  1. LEVETIRACETAM. [Suspect]
     Active Substance: LEVETIRACETAM
     Indication: SEIZURE
     Dosage: UNK
     Route: 048
     Dates: start: 201405
  2. ALLEGRA [Concomitant]
     Active Substance: FEXOFENADINE HYDROCHLORIDE
     Dosage: UNK
     Route: 065
  3. LACOSAMIDE [Concomitant]
     Active Substance: LACOSAMIDE
     Indication: SEIZURE
     Dosage: UNK
     Route: 065

REACTIONS (4)
  - Hospitalisation [Recovered/Resolved]
  - Seizure [Recovered/Resolved]
  - Drug ineffective [Recovered/Resolved]
  - Condition aggravated [Recovered/Resolved]

NARRATIVE: CASE EVENT DATE: 201410
